FAERS Safety Report 5850135-1 (Version None)
Quarter: 2008Q3

REPORT INFORMATION
  Report Type: 
  Country: None (occurrence: None)
  Receive Date: 20080819
  Receipt Date: 20080728
  Transmission Date: 20090109
  Serious: No
  Sender: FDA-Public Use
  Company Number: US-BOEHRINGER INGELHEIM GMBH, GERMANY-2008-BP-11847BP

PATIENT
  Age: 76 Year
  Sex: Male

DRUGS (10)
  1. FLOMAX [Suspect]
     Indication: BENIGN PROSTATIC HYPERPLASIA
     Route: 048
     Dates: start: 20080722
  2. ALLOPURINOL [Concomitant]
     Indication: GOUT
  3. LISINOPRIL [Concomitant]
     Indication: HYPERTENSION
  4. DILTIAZEM HCL [Concomitant]
     Indication: HYPERTENSION
  5. PROTONIX [Concomitant]
     Indication: GASTROOESOPHAGEAL REFLUX DISEASE
  6. PARLODEL [Concomitant]
     Indication: BENIGN NEOPLASM OF EYE
  7. SYNTHROID [Concomitant]
     Indication: HYPOTHYROIDISM
  8. SIMVASTATIN [Concomitant]
  9. PLAVIX [Concomitant]
  10. ALBUTEROL [Concomitant]

REACTIONS (3)
  - ASTHENIA [None]
  - DIZZINESS [None]
  - FATIGUE [None]
